FAERS Safety Report 5484435-4 (Version None)
Quarter: 2007Q4

REPORT INFORMATION
  Report Type: 
  Country: None (occurrence: None)
  Receive Date: 20071010
  Receipt Date: 20070928
  Transmission Date: 20080405
  Serious: Yes (Death)
  Sender: FDA-Public Use
  Company Number: 2007AL004134

PATIENT
  Age: 37 Year
  Sex: Male

DRUGS (4)
  1. DICLOFENAC SODIUM [Suspect]
     Indication: PAIN IN EXTREMITY
     Dosage: 1; BID; PO
     Route: 048
     Dates: start: 20070518, end: 20070519
  2. TRAMADOL HCL [Suspect]
     Indication: PAIN IN EXTREMITY
     Dosage: PRN; PO
     Route: 048
     Dates: start: 20070518, end: 20070519
  3. AMITRIPTYLINE HCL [Concomitant]
  4. DULOXETINE [Concomitant]

REACTIONS (1)
  - SUDDEN DEATH [None]
